FAERS Safety Report 21803555 (Version 1)
Quarter: 2023Q1

REPORT INFORMATION
  Report Type: Spontaneous
  Country: US (occurrence: US)
  Receive Date: 20230101
  Receipt Date: 20230101
  Transmission Date: 20230417
  Serious: Yes (Hospitalization)
  Sender: FDA-Public Use
  Company Number: US-STRIDES ARCOLAB LIMITED-2022SP005342

PATIENT
  Age: 50 Year
  Sex: Female

DRUGS (3)
  1. ACYCLOVIR [Suspect]
     Active Substance: ACYCLOVIR
     Indication: Chemical burn of skin
     Dosage: UNK
     Route: 065
  2. KETOCONAZOLE [Suspect]
     Active Substance: KETOCONAZOLE
     Indication: Chemical burn of skin
     Dosage: UNK
     Route: 065
  3. SILVER SULFADIAZINE [Suspect]
     Active Substance: SILVER SULFADIAZINE
     Indication: Chemical burn of skin
     Dosage: UNK
     Route: 065

REACTIONS (1)
  - Drug ineffective for unapproved indication [Unknown]
